FAERS Safety Report 21391526 (Version 2)
Quarter: 2022Q4

REPORT INFORMATION
  Report Type: Spontaneous
  Country: GB (occurrence: GB)
  Receive Date: 20220929
  Receipt Date: 20221006
  Transmission Date: 20230112
  Serious: Yes (Other)
  Sender: FDA-Public Use
  Company Number: GB-PFIZER INC-PV202200066260

PATIENT
  Age: 40 Year
  Sex: Female

DRUGS (4)
  1. PACLITAXEL [Suspect]
     Active Substance: PACLITAXEL
     Indication: Breast cancer female
     Dosage: PACLITAXEL 144MG IN 274ML (144 MG, STRENGTH: 300MG/50 ML)
     Route: 042
     Dates: start: 20220621, end: 20220621
  2. DEXAMETHASONE SODIUM PHOSPHATE [Suspect]
     Active Substance: DEXAMETHASONE SODIUM PHOSPHATE
     Indication: Premedication
     Dosage: 8 MG
     Route: 042
     Dates: start: 20220621, end: 20220621
  3. SODIUM CHLORIDE [Suspect]
     Active Substance: SODIUM CHLORIDE
     Indication: Medication dilution
     Dosage: SODIUM CHLORIDE 0.9% 250ML VIAFLO
     Route: 042
     Dates: start: 20220621, end: 20220621
  4. CHLORPHENIRAMINE MALEATE [Suspect]
     Active Substance: CHLORPHENIRAMINE MALEATE
     Indication: Premedication
     Dosage: 10 MG
     Route: 042
     Dates: start: 20220621, end: 20220621

REACTIONS (5)
  - Palpitations [Unknown]
  - Erythema [Unknown]
  - Chest pain [Unknown]
  - Hypertension [Unknown]
  - Heart rate increased [Unknown]

NARRATIVE: CASE EVENT DATE: 20220621
